FAERS Safety Report 15334710 (Version 5)
Quarter: 2019Q4

REPORT INFORMATION
  Report Type: Report from Study
  Country: US (occurrence: US)
  Receive Date: 20180830
  Receipt Date: 20191223
  Transmission Date: 20200122
  Serious: No
  Sender: FDA-Public Use
  Company Number: PHHY2018US009183

PATIENT
  Age: 51 Year
  Sex: Male

DRUGS (1)
  1. GILENYA [Suspect]
     Active Substance: FINGOLIMOD HYDROCHLORIDE
     Indication: MULTIPLE SCLEROSIS
     Dosage: UNK, QD
     Route: 048

REACTIONS (13)
  - Back pain [Recovered/Resolved]
  - Fibrous histiocytoma [Unknown]
  - Seborrhoeic keratosis [Unknown]
  - Lymphocyte count decreased [Unknown]
  - Restless legs syndrome [Not Recovered/Not Resolved]
  - Gastroenteritis [Recovered/Resolved]
  - Dysplastic naevus [Not Recovered/Not Resolved]
  - Eczema [Recovered/Resolved]
  - Muscle strain [Recovered/Resolved]
  - Concomitant disease aggravated [Recovered/Resolved]
  - Blood alkaline phosphatase decreased [Unknown]
  - White blood cell count decreased [Unknown]
  - Acute sinusitis [Recovered/Resolved]

NARRATIVE: CASE EVENT DATE: 20180409
